FAERS Safety Report 8550102-3 (Version None)
Quarter: 2012Q3

REPORT INFORMATION
  Report Type: 
  Country: None (occurrence: None)
  Receive Date: 20120730
  Receipt Date: 20080724
  Transmission Date: 20120928
  Serious: Yes (Other)
  Sender: FDA-Public Use
  Company Number: CO-PFIZER INC-2012179555

PATIENT
  Age: 69 Year
  Sex: Female

DRUGS (4)
  1. ACETYLSALICYLIC ACID [Concomitant]
     Dosage: UNK, 1X/DAY
  2. LIPITOR [Suspect]
     Indication: DYSLIPIDAEMIA
     Dosage: 30 MG, 1X/DAY
  3. METFORMIN [Concomitant]
     Dosage: UNK, 1X/DAY
  4. OLMESARTAN MEDOXOMIL AND HYDROCHLOROTHIZIDE [Suspect]
     Indication: HYPERTENSION
     Dosage: UNK, 1X/DAY

REACTIONS (2)
  - HYPERTENSIVE EMERGENCY [None]
  - ANGIOPLASTY [None]
